FAERS Safety Report 14969204 (Version 1)
Quarter: 2018Q2

REPORT INFORMATION
  Report Type: Spontaneous
  Country: US (occurrence: US)
  Receive Date: 20180511
  Receipt Date: 20180511
  Transmission Date: 20180711
  Serious: No
  Sender: FDA-Public Use
  Company Number: None

PATIENT
  Age: 84 Year
  Sex: Male
  Weight: 85 kg

DRUGS (1)
  1. ALBUTEROL. [Suspect]
     Active Substance: ALBUTEROL
     Indication: CHRONIC OBSTRUCTIVE PULMONARY DISEASE
     Dosage: ?          OTHER DOSE:2 PUFFS;?
     Route: 055
     Dates: start: 20171103, end: 20180306

REACTIONS (6)
  - Drug effect decreased [None]
  - Lung disorder [None]
  - Cough [None]
  - Wheezing [None]
  - Treatment failure [None]
  - Burning sensation [None]

NARRATIVE: CASE EVENT DATE: 20180305
